FAERS Safety Report 15094554 (Version 1)
Quarter: 2018Q2

REPORT INFORMATION
  Report Type: Report from Study
  Country: US (occurrence: US)
  Receive Date: 20180630
  Receipt Date: 20180630
  Transmission Date: 20180711
  Serious: Yes (Other)
  Sender: FDA-Public Use
  Company Number: US-AMGEN-USASL2018087106

PATIENT
  Age: 70 Year
  Sex: Female

DRUGS (1)
  1. REPATHA [Suspect]
     Active Substance: EVOLOCUMAB
     Indication: HYPERCHOLESTEROLAEMIA
     Dosage: 140 MG, Q2WK
     Route: 065

REACTIONS (8)
  - Pulmonary embolism [Unknown]
  - Cyst [Unknown]
  - Deep vein thrombosis [Unknown]
  - Gallbladder operation [Unknown]
  - Fall [Unknown]
  - Autoimmune hepatitis [Unknown]
  - Injection site pain [Unknown]
  - Meniscus injury [Unknown]

NARRATIVE: CASE EVENT DATE: 2018
